FAERS Safety Report 7185236-1 (Version None)
Quarter: 2010Q4

REPORT INFORMATION
  Report Type: 
  Country: None (occurrence: None)
  Receive Date: 20101222
  Receipt Date: 20101216
  Transmission Date: 20110411
  Serious: Yes (Other)
  Sender: FDA-Public Use
  Company Number: IT-PFIZER INC-2010175270

PATIENT
  Sex: Female

DRUGS (3)
  1. EXEMESTANE [Suspect]
     Indication: METASTASES TO BONE
     Dosage: UNK
     Dates: start: 20100801
  2. CUMADIN [Concomitant]
  3. VITAMIN D [Concomitant]

REACTIONS (1)
  - NEUTROPHIL COUNT DECREASED [None]
